FAERS Safety Report 16772253 (Version 1)
Quarter: 2019Q3

REPORT INFORMATION
  Report Type: Spontaneous
  Country: FR (occurrence: FR)
  Receive Date: 20190904
  Receipt Date: 20190904
  Transmission Date: 20191005
  Serious: Yes (Other)
  Sender: FDA-Public Use
  Company Number: FR-PFIZER INC-2019373295

PATIENT
  Age: 28 Year
  Sex: Male
  Weight: 60 kg

DRUGS (5)
  1. XANAX [Suspect]
     Active Substance: ALPRAZOLAM
     Indication: SCHIZOPHRENIA
     Dosage: 2 DF, 1X/DAY
     Route: 048
     Dates: start: 200611, end: 2016
  2. SEROPLEX [Suspect]
     Active Substance: ESCITALOPRAM OXALATE
     Indication: SCHIZOPHRENIA
     Dosage: 1 DF, 1X/DAY
     Route: 048
     Dates: start: 200611, end: 2016
  3. PARKINANE LP [Suspect]
     Active Substance: TRIHEXYPHENIDYL HYDROCHLORIDE
     Indication: SCHIZOPHRENIA
     Dosage: 2 DF, 1X/DAY
     Route: 048
     Dates: start: 200611, end: 2016
  4. TERCIAN [CYAMEMAZINE TARTRATE] [Suspect]
     Active Substance: CYAMEMAZINE
     Indication: SCHIZOPHRENIA
     Dosage: 2 DF, 1X/DAY
     Route: 048
     Dates: end: 201801
  5. RISPERDAL [Suspect]
     Active Substance: RISPERIDONE
     Indication: SCHIZOPHRENIA
     Dosage: UNK
     Route: 048
     Dates: start: 200611, end: 201801

REACTIONS (3)
  - Decreased interest [Recovered/Resolved with Sequelae]
  - Apathy [Recovered/Resolved with Sequelae]
  - Loss of personal independence in daily activities [Recovered/Resolved with Sequelae]

NARRATIVE: CASE EVENT DATE: 200611
